FAERS Safety Report 15062171 (Version 1)
Quarter: 2018Q3

REPORT INFORMATION
  Report Type: Spontaneous
  Country: US (occurrence: US)
  Receive Date: 20180625
  Receipt Date: 20180625
  Transmission Date: 20181010
  Serious: Yes (Other)
  Sender: FDA-Public Use
  Company Number: US-GILEAD-2018-0345632

PATIENT
  Age: 73 Year
  Sex: Male
  Weight: 65.4 kg

DRUGS (1)
  1. YESCARTA [Suspect]
     Active Substance: AXICABTAGENE CILOLEUCEL
     Indication: DIFFUSE LARGE B-CELL LYMPHOMA
     Dosage: UNK
     Route: 042
     Dates: start: 20180501, end: 20180501

REACTIONS (16)
  - Tremor [Unknown]
  - Confusional state [Unknown]
  - Restlessness [Unknown]
  - Cytokine release syndrome [Unknown]
  - Aphasia [Unknown]
  - Hemiparesis [Unknown]
  - Encephalopathy [Unknown]
  - Memory impairment [Unknown]
  - Pyrexia [Unknown]
  - Muscular weakness [Unknown]
  - Hypoxia [Unknown]
  - Hypotension [Unknown]
  - Pulmonary oedema [Unknown]
  - Motor dysfunction [Unknown]
  - Incontinence [Unknown]
  - Dizziness [Unknown]

NARRATIVE: CASE EVENT DATE: 20180503
